FAERS Safety Report 16253091 (Version 1)
Quarter: 2019Q2

REPORT INFORMATION
  Report Type: Spontaneous
  Country: US (occurrence: US)
  Receive Date: 20190429
  Receipt Date: 20190429
  Transmission Date: 20190711
  Serious: No
  Sender: FDA-Public Use
  Company Number: US-SA-2019SA114529

PATIENT
  Age: 37 Year
  Sex: Female

DRUGS (1)
  1. RIFADIN [Suspect]
     Active Substance: RIFAMPIN
     Dosage: UNK
     Dates: start: 20190213

REACTIONS (3)
  - Saliva discolouration [Unknown]
  - Nasal discharge discolouration [Unknown]
  - Wrong technique in product usage process [Unknown]

NARRATIVE: CASE EVENT DATE: 20190422
